FAERS Safety Report 23422654 (Version 5)
Quarter: 2025Q1

REPORT INFORMATION
  Report Type: Spontaneous
  Country: US (occurrence: US)
  Receive Date: 20240119
  Receipt Date: 20250225
  Transmission Date: 20250408
  Serious: Yes (Hospitalization)
  Sender: PFIZER
  Company Number: US-PFIZER INC-202400016427

PATIENT
  Age: 75 Year
  Sex: Female
  Weight: 68.04 kg

DRUGS (3)
  1. PREMARIN [Suspect]
     Active Substance: ESTROGENS, CONJUGATED
     Indication: Abdominal pain
  2. PREMARIN [Suspect]
     Active Substance: ESTROGENS, CONJUGATED
  3. PREMARIN [Suspect]
     Active Substance: ESTROGENS, CONJUGATED

REACTIONS (4)
  - Vaginal haemorrhage [Unknown]
  - Vulvovaginal pain [Unknown]
  - Weight increased [Unknown]
  - Off label use [Unknown]
